FAERS Safety Report 7219826-4 (Version None)
Quarter: 2011Q1

REPORT INFORMATION
  Report Type: 
  Country: None (occurrence: None)
  Receive Date: 20110111
  Receipt Date: 20110105
  Transmission Date: 20110831
  Serious: Yes (Death, Hospitalization, Other)
  Sender: FDA-Public Use
  Company Number: JP-ROCHE-712250

PATIENT
  Age: 35 Year
  Sex: Male

DRUGS (3)
  1. CELLCEPT [Suspect]
     Indication: PROPHYLAXIS AGAINST TRANSPLANT REJECTION
     Route: 048
  2. TACROLIMUS [Concomitant]
     Dosage: DOSE FORM: UNCERTAINTY
     Route: 065
  3. PREDNISOLONE [Concomitant]
     Dosage: DOSE FORM: UNCERTAINTY
     Route: 065

REACTIONS (5)
  - ENDOCARDITIS [None]
  - NOCARDIOSIS [None]
  - BRONCHOPULMONARY ASPERGILLOSIS [None]
  - PULMONARY CAVITATION [None]
  - MENINGITIS [None]
